FAERS Safety Report 7162655-0 (Version None)
Quarter: 2010Q4

REPORT INFORMATION
  Report Type: 
  Country: None (occurrence: None)
  Receive Date: 20101215
  Receipt Date: 20091202
  Transmission Date: 20110411
  Serious: Yes (Other)
  Sender: FDA-Public Use
  Company Number: IS-PFIZER INC-2009305253

PATIENT
  Age: 26 Year
  Sex: Male

DRUGS (1)
  1. LYRICA [Suspect]
     Indication: POST HERPETIC NEURALGIA
     Dosage: UNK

REACTIONS (2)
  - DEPENDENCE [None]
  - EUPHORIC MOOD [None]
